FAERS Safety Report 23098954 (Version 3)
Quarter: 2024Q1

REPORT INFORMATION
  Report Type: Spontaneous
  Country: US (occurrence: US)
  Receive Date: 20231024
  Receipt Date: 20240228
  Transmission Date: 20240410
  Serious: No
  Sender: FDA-Public Use
  Company Number: US-SA-SAC20231021000376

PATIENT
  Age: 3 Year
  Sex: Female

DRUGS (1)
  1. DUPIXENT [Suspect]
     Active Substance: DUPILUMAB
     Indication: Dermatitis atopic
     Dosage: 200 MG, Q4W
     Route: 058

REACTIONS (6)
  - Pruritus [Unknown]
  - Dry skin [Unknown]
  - Skin exfoliation [Unknown]
  - Rash macular [Unknown]
  - Sleep disorder due to a general medical condition [Unknown]
  - Inappropriate schedule of product administration [Unknown]
